FAERS Safety Report 8787736 (Version 1)
Quarter: 2012Q4

REPORT INFORMATION
  Report Type: Report from Study
  Country: US (occurrence: US)
  Receive Date: 20120914
  Receipt Date: 20120914
  Transmission Date: 20130627
  Serious: No
  Sender: FDA-Public Use
  Company Number: US-VERTEX PHARMACEUTICAL INC.-AE-2012-008351

PATIENT

DRUGS (3)
  1. INCIVEK [Suspect]
     Indication: HEPATITIS C
     Route: 048
     Dates: start: 20120514
  2. PEGASYS [Concomitant]
     Indication: HEPATITIS C
     Route: 058
     Dates: start: 20120514
  3. RIBAPAK [Concomitant]
     Indication: HEPATITIS C
     Route: 048
     Dates: start: 20120514, end: 20120529

REACTIONS (13)
  - Tachycardia [Unknown]
  - Hyperaesthesia [Unknown]
  - Stomatitis [Unknown]
  - Lip swelling [Unknown]
  - Faeces discoloured [Unknown]
  - Anaemia [Unknown]
  - Rash [Unknown]
  - Haemorrhoids [Unknown]
  - Diarrhoea [Unknown]
  - Nausea [Unknown]
  - Pruritus [Unknown]
  - Anal pruritus [Unknown]
  - Anorectal discomfort [Unknown]
